FAERS Safety Report 11648019 (Version 3)
Quarter: 2016Q1

REPORT INFORMATION
  Report Type: Spontaneous
  Country: JP (occurrence: JP)
  Receive Date: 20151021
  Receipt Date: 20160217
  Transmission Date: 20160525
  Serious: Yes (Life-Threatening, Other)
  Sender: FDA-Public Use
  Company Number: JP-009507513-1510JPN008602

PATIENT
  Age: 53 Year
  Sex: Female
  Weight: 58 kg

DRUGS (4)
  1. MAGNESIUM OXIDE. [Concomitant]
     Active Substance: MAGNESIUM OXIDE
     Indication: PROPHYLAXIS AGAINST DIARRHOEA
     Dosage: 1 G, QD
     Route: 065
     Dates: start: 20150428
  2. BELSOMRA [Suspect]
     Active Substance: SUVOREXANT
     Indication: INSOMNIA
     Dosage: 20 MG, QD
     Route: 048
     Dates: start: 20150428, end: 20150603
  3. ZYPREXA [Suspect]
     Active Substance: OLANZAPINE
     Indication: BIPOLAR DISORDER
     Dosage: 5 MG, QD
     Route: 048
     Dates: start: 20150428, end: 20150501
  4. ZYPREXA [Suspect]
     Active Substance: OLANZAPINE
     Dosage: 10 MG, QD
     Route: 048
     Dates: start: 20150502, end: 20150517

REACTIONS (2)
  - Drug ineffective [Unknown]
  - Suicide attempt [Recovered/Resolved]

NARRATIVE: CASE EVENT DATE: 20150428
